FAERS Safety Report 13267072 (Version 3)
Quarter: 2017Q2

REPORT INFORMATION
  Report Type: Spontaneous
  Country: FR (occurrence: FR)
  Receive Date: 20170224
  Receipt Date: 20170511
  Transmission Date: 20170830
  Serious: Yes (Death, Hospitalization, Other)
  Sender: FDA-Public Use
  Company Number: FR-ROCHE-1897639

PATIENT
  Age: 74 Year
  Sex: Female
  Weight: 63 kg

DRUGS (5)
  1. CALCIPARINE [Suspect]
     Active Substance: HEPARIN CALCIUM
     Indication: PRODUCT USED FOR UNKNOWN INDICATION
     Route: 058
     Dates: start: 20170208
  2. HERCEPTIN [Suspect]
     Active Substance: TRASTUZUMAB
     Indication: BREAST CANCER
     Dosage: 08/FEB/2017: SECOND CYCLE
     Route: 042
     Dates: start: 20170118
  3. DOCETAXEL. [Suspect]
     Active Substance: DOCETAXEL
     Indication: BREAST CANCER
     Dosage: 08/FEB/2017: SECOND CYCLE
     Route: 042
     Dates: start: 20170118, end: 20170215
  4. COUMADINE [Concomitant]
     Active Substance: WARFARIN SODIUM
     Route: 065
     Dates: start: 20170208
  5. ENDOXAN [Suspect]
     Active Substance: CYCLOPHOSPHAMIDE
     Indication: BREAST CANCER
     Dosage: 08/FEB/2017: SECOND CYCLE
     Route: 042
     Dates: start: 20170118

REACTIONS (17)
  - Haemoglobin decreased [Fatal]
  - Loss of consciousness [Fatal]
  - Pain [Unknown]
  - Abdominal distension [Unknown]
  - Abdominal pain [Unknown]
  - Pancreatic atrophy [Fatal]
  - Aortic calcification [Fatal]
  - Arthralgia [Unknown]
  - Blood alkaline phosphatase increased [Unknown]
  - Systemic lupus erythematosus rash [Unknown]
  - Alopecia [Unknown]
  - Vascular calcification [Unknown]
  - Leukopenia [Fatal]
  - Pancytopenia [Fatal]
  - Cerebral haematoma [Fatal]
  - Thrombocytopenia [Fatal]
  - Gamma-glutamyltransferase increased [Unknown]

NARRATIVE: CASE EVENT DATE: 20170122
